FAERS Safety Report 4989825-1 (Version None)
Quarter: 2006Q2

REPORT INFORMATION
  Report Type: 
  Country: None (occurrence: None)
  Receive Date: 20060501
  Receipt Date: 20051021
  Transmission Date: 20061013
  Serious: Yes (Death, Life-Threatening)
  Sender: FDA-Public Use
  Company Number: 805#9#2005-00099

PATIENT
  Age: 88 Year
  Sex: Male

DRUGS (9)
  1. ALPROSTADIL [Suspect]
     Indication: ARTERIOSCLEROSIS OBLITERANS
     Dosage: 120 MCG (60 MCG 2 IN 1 DAY (S) )
     Route: 041
     Dates: start: 20050512, end: 20050523
  2. SARPOGRELATE HYDROCHLORIDE (SARPOGRELATE HYDROCHLORIDE) [Concomitant]
  3. AMLODIPINE BESYLATE [Concomitant]
  4. CARPERITIDE (CARPERITIDE) [Concomitant]
  5. HEPARIN SODIUM (HEPARIN) [Concomitant]
  6. ISOSORBIDE DINITRATE [Concomitant]
  7. NICORANDIL (NICORANDIL) [Concomitant]
  8. INSULIN HUMAN (INSULIN HUMAN) [Concomitant]
  9. BUFFERIN [Concomitant]

REACTIONS (2)
  - ACUTE CORONARY SYNDROME [None]
  - CARDIAC FAILURE CONGESTIVE [None]
